FAERS Safety Report 9670151 (Version 3)
Quarter: 2014Q1

REPORT INFORMATION
  Report Type: Spontaneous
  Country: US (occurrence: US)
  Receive Date: 20131105
  Receipt Date: 20140115
  Transmission Date: 20141002
  Serious: Yes (Other)
  Sender: FDA-Public Use
  Company Number: US-ELI_LILLY_AND_COMPANY-US201310007961

PATIENT
  Age: 59 Year
  Sex: Female
  Weight: 62.3 kg

DRUGS (7)
  1. HUMALOG LISPRO [Suspect]
     Indication: DIABETES MELLITUS
     Dosage: 4 U, TID
     Route: 065
     Dates: start: 20130607
  2. PLAVIX [Concomitant]
     Indication: PERIPHERAL VASCULAR DISORDER
     Dosage: UNK
     Dates: start: 2006
  3. CYMBALTA [Concomitant]
     Indication: DEPRESSION
     Dosage: UNK
     Dates: start: 2010
  4. ASPIRIN [Concomitant]
     Indication: PERIPHERAL VASCULAR DISORDER
     Dosage: UNK
     Dates: start: 2006
  5. ESTRADIOL [Concomitant]
     Indication: HYSTERECTOMY
     Dosage: UNK
     Dates: start: 1997
  6. SYNTHROID [Concomitant]
     Indication: THYROIDITIS
     Dosage: UNK
     Dates: start: 2004
  7. ZYRTEC [Concomitant]
     Indication: SEASONAL ALLERGY
     Dosage: UNK
     Dates: start: 2010

REACTIONS (2)
  - Hypoglycaemic unconsciousness [Recovered/Resolved]
  - Road traffic accident [Recovered/Resolved]
